FAERS Safety Report 25868408 (Version 1)
Quarter: 2025Q4

REPORT INFORMATION
  Report Type: Spontaneous
  Country: US (occurrence: US)
  Receive Date: 20251001
  Receipt Date: 20251001
  Transmission Date: 20260118
  Serious: Yes (Other)
  Sender: MERCK SHARP & DOHME LLC
  Company Number: US-009507513-2333971

PATIENT
  Sex: Female

DRUGS (3)
  1. BELSOMRA [Suspect]
     Active Substance: SUVOREXANT
     Indication: Insomnia
     Dosage: TIME INTERVAL: AS NECESSARY: 20 MG, ^WHEN SHE STILL CANNOT SLEEP AFTER TAKING 2 MG OF XANAX AROUN...
     Route: 048
     Dates: start: 2025
  2. XANAX [Concomitant]
     Active Substance: ALPRAZOLAM
     Route: 065
  3. AMBIEN [Concomitant]
     Active Substance: ZOLPIDEM TARTRATE
     Route: 065

REACTIONS (6)
  - Type 2 diabetes mellitus [Unknown]
  - Abnormal dreams [Unknown]
  - Drug ineffective [Unknown]
  - Blood glucose fluctuation [Unknown]
  - Accidental overdose [Unknown]
  - Glycosylated haemoglobin increased [Unknown]

NARRATIVE: CASE EVENT DATE: 20250901
